FAERS Safety Report 5854133-3 (Version None)
Quarter: 2008Q3

REPORT INFORMATION
  Report Type: 
  Country: None (occurrence: None)
  Receive Date: 20080822
  Receipt Date: 20080815
  Transmission Date: 20090109
  Serious: Yes (Other)
  Sender: FDA-Public Use
  Company Number: UY-JNJFOC-20080803756

PATIENT
  Age: 68 Year
  Sex: Male

DRUGS (5)
  1. TOPAMAC [Suspect]
     Indication: ESSENTIAL TREMOR
     Route: 048
  2. PROPRANOLOL [Concomitant]
     Indication: TREMOR
     Dates: start: 20050101
  3. TAMSULOSIN HCL [Concomitant]
     Indication: PROSTATIC DISORDER
  4. FOLIC ACID [Concomitant]
  5. LIPITOR [Concomitant]
     Indication: DRUG USE FOR UNKNOWN INDICATION

REACTIONS (2)
  - BLOOD CREATININE INCREASED [None]
  - RENAL FAILURE [None]
